FAERS Safety Report 5135186-7 (Version None)
Quarter: 2006Q4

REPORT INFORMATION
  Report Type: 
  Country: None (occurrence: None)
  Receive Date: 20061026
  Receipt Date: 20061013
  Transmission Date: 20070319
  Serious: Yes (Hospitalization)
  Sender: FDA-Public Use
  Company Number: PHBS2006AU16053

PATIENT
  Age: 30 Year
  Sex: Male

DRUGS (1)
  1. RITALIN [Suspect]
     Dosage: 30 MG, ONCE/SINGLE

REACTIONS (12)
  - ABSCESS DRAINAGE [None]
  - ABSCESS LIMB [None]
  - BLOOD CREATINE PHOSPHOKINASE INCREASED [None]
  - C-REACTIVE PROTEIN INCREASED [None]
  - INCORRECT ROUTE OF DRUG ADMINISTRATION [None]
  - INJECTION SITE REACTION [None]
  - MUSCLE NECROSIS [None]
  - MYOSITIS [None]
  - OEDEMA PERIPHERAL [None]
  - PAIN IN EXTREMITY [None]
  - SURGERY [None]
  - WHITE BLOOD CELL COUNT INCREASED [None]
